FAERS Safety Report 6899199-7 (Version None)
Quarter: 2010Q3

REPORT INFORMATION
  Report Type: 
  Country: None (occurrence: None)
  Receive Date: 20100802
  Receipt Date: 20080207
  Transmission Date: 20110219
  Serious: No
  Sender: FDA-Public Use
  Company Number: US-PFIZER INC-2007107605

PATIENT
  Sex: Female
  Weight: 81.818 kg

DRUGS (5)
  1. LYRICA [Suspect]
     Indication: ARTHRITIS
     Dates: start: 20071219
  2. PROZAC [Concomitant]
  3. XANAX [Concomitant]
  4. DILAUDID [Concomitant]
  5. LASIX [Concomitant]

REACTIONS (2)
  - COGNITIVE DISORDER [None]
  - MOOD ALTERED [None]
